FAERS Safety Report 6497947-1 (Version None)
Quarter: 2009Q4

REPORT INFORMATION
  Report Type: 
  Country: None (occurrence: None)
  Receive Date: 20091215
  Receipt Date: 20091202
  Transmission Date: 20100525
  Serious: Yes (Other)
  Sender: FDA-Public Use
  Company Number: BR-PFIZER INC-2009305046

PATIENT
  Age: 32 Year
  Sex: Male
  Weight: 93 kg

DRUGS (4)
  1. GEODON [Suspect]
     Indication: SCHIZOPHRENIA
     Dosage: 80 MG, 1X/DAY
     Route: 048
     Dates: start: 20091110
  2. HALDOL [Concomitant]
     Dosage: UNK
  3. PARACETAMOL [Concomitant]
  4. OMEPRAZOLE [Concomitant]
     Dosage: UNK

REACTIONS (8)
  - ANXIETY [None]
  - HALLUCINATION, AUDITORY [None]
  - INSOMNIA [None]
  - MALAISE [None]
  - RESTLESSNESS [None]
  - SCHIZOPHRENIA [None]
  - SUICIDAL IDEATION [None]
  - VOMITING [None]
